FAERS Safety Report 20984484 (Version 1)
Quarter: 2022Q2

REPORT INFORMATION
  Report Type: Spontaneous
  Country: US (occurrence: US)
  Receive Date: 20220621
  Receipt Date: 20220621
  Transmission Date: 20220721
  Serious: No
  Sender: FDA-Public Use
  Company Number: US-JNJFOC-20220633437

PATIENT

DRUGS (2)
  1. REMICADE [Suspect]
     Active Substance: INFLIXIMAB
     Indication: Inflammatory bowel disease
     Route: 064
     Dates: start: 20170407, end: 20171219
  2. VEDOLIZUMAB [Concomitant]
     Active Substance: VEDOLIZUMAB
     Indication: Product used for unknown indication
     Route: 065

REACTIONS (2)
  - Blood glucose decreased [Recovered/Resolved]
  - Foetal exposure during pregnancy [Recovered/Resolved]
